FAERS Safety Report 7710639-3 (Version None)
Quarter: 2011Q3

REPORT INFORMATION
  Report Type: 
  Country: None (occurrence: None)
  Receive Date: 20110825
  Receipt Date: 20110822
  Transmission Date: 20111222
  Serious: No
  Sender: FDA-Public Use
  Company Number: US-PFIZER INC-2011194927

PATIENT
  Sex: Male
  Weight: 71.655 kg

DRUGS (1)
  1. MISOPROSTOL [Suspect]
     Indication: CONSTIPATION
     Dosage: 200 UG, 3X/DAY
     Route: 048
     Dates: start: 20110810

REACTIONS (1)
  - DYSPHAGIA [None]
